FAERS Safety Report 6738438-X (Version None)
Quarter: 2010Q2

REPORT INFORMATION
  Report Type: 
  Country: None (occurrence: None)
  Receive Date: 20100520
  Receipt Date: 20100507
  Transmission Date: 20101027
  Serious: Yes (Other)
  Sender: FDA-Public Use
  Company Number: 020758769A

PATIENT
  Age: 69 Year
  Sex: Female

DRUGS (1)
  1. COLGATE TOTAL [Suspect]
     Indication: GINGIVITIS
     Dosage: FULL HEAD OF TOOTHBRUSH/3XDAY/ORAL
     Route: 048

REACTIONS (2)
  - BREAST CANCER FEMALE [None]
  - THYROID NEOPLASM [None]
